FAERS Safety Report 6311672-9 (Version None)
Quarter: 2009Q3

REPORT INFORMATION
  Report Type: 
  Country: None (occurrence: None)
  Receive Date: 20090817
  Receipt Date: 20090803
  Transmission Date: 20100115
  Serious: Yes (Other)
  Sender: FDA-Public Use
  Company Number: US-SOLVAY-00209004385

PATIENT
  Age: 10721 Day
  Sex: Female
  Weight: 63.5 kg

DRUGS (1)
  1. PROMETRIUM [Suspect]
     Indication: PRENATAL CARE
     Dosage: DAILY DOSE: 100 MILLIGRAM(S)
     Route: 048
     Dates: start: 20080201, end: 20080201

REACTIONS (1)
  - ANTEPARTUM HAEMORRHAGE [None]
